FAERS Safety Report 9325454 (Version 1)
Quarter: 2013Q2

REPORT INFORMATION
  Report Type: Spontaneous
  Country: US (occurrence: None)
  Receive Date: 20130531
  Receipt Date: 20130531
  Transmission Date: 20140414
  Serious: Yes (Other)
  Sender: FDA-Public Use
  Company Number: None

PATIENT
  Age: 63 Year
  Sex: Female
  Weight: 61.24 kg

DRUGS (2)
  1. KENALOG [Suspect]
     Indication: MIGRAINE
     Route: 008
     Dates: start: 20130116, end: 20130130
  2. KENALOG [Suspect]
     Route: 008
     Dates: start: 20130116, end: 20130130

REACTIONS (8)
  - Migraine [None]
  - Diplopia [None]
  - Vertigo [None]
  - Nausea [None]
  - Gastrointestinal ulcer [None]
  - Muscle spasms [None]
  - Drug ineffective [None]
  - Product quality issue [None]
